FAERS Safety Report 6787467-9 (Version None)
Quarter: 2010Q2

REPORT INFORMATION
  Report Type: 
  Country: None (occurrence: None)
  Receive Date: 20100623
  Receipt Date: 20070730
  Transmission Date: 20101027
  Serious: Yes (Other)
  Sender: FDA-Public Use
  Company Number: US-PFIZER INC-2007037487

PATIENT
  Sex: Female
  Weight: 100.8 kg

DRUGS (1)
  1. SUTENT [Suspect]
     Indication: METASTATIC RENAL CELL CARCINOMA
     Dosage: DAILY (4 WEEKS ON, 2 WEEKS OFF)
     Route: 048
     Dates: start: 20070201, end: 20070412

REACTIONS (2)
  - EPISTAXIS [None]
  - SUBDURAL HAEMORRHAGE [None]
